FAERS Safety Report 26194011 (Version 1)
Quarter: 2025Q4

REPORT INFORMATION
  Report Type: Spontaneous
  Country: US (occurrence: US)
  Receive Date: 20251224
  Receipt Date: 20251224
  Transmission Date: 20260117
  Serious: No
  Sender: TRIS PHARMA, INC.
  Company Number: US-TRIS PHARMA, INC.-25US012192

PATIENT
  Age: 3 Year

DRUGS (6)
  1. ONYDA XR [Suspect]
     Active Substance: CLONIDINE HYDROCHLORIDE
     Indication: Psychomotor hyperactivity
     Dosage: 2 MILLILITRE, QD
     Route: 061
  2. ONYDA XR [Suspect]
     Active Substance: CLONIDINE HYDROCHLORIDE
     Dosage: 1 MILLILITRE, QD (AT BEDTIME)
     Route: 061
  3. ONYDA XR [Suspect]
     Active Substance: CLONIDINE HYDROCHLORIDE
     Dosage: 0.75 MILLILITRE
     Route: 061
  4. ONYDA XR [Suspect]
     Active Substance: CLONIDINE HYDROCHLORIDE
     Dosage: 0.5 MILLILITRE
     Route: 061
  5. ONYDA XR [Suspect]
     Active Substance: CLONIDINE HYDROCHLORIDE
     Dosage: 0.25 MILLILITRE
     Route: 061
  6. VITAMINS [Concomitant]
     Active Substance: VITAMINS
     Indication: Supplementation therapy

REACTIONS (5)
  - Off label use [Unknown]
  - Product packaging quantity issue [Unknown]
  - Drug ineffective for unapproved indication [Unknown]
  - Product physical consistency issue [Unknown]
  - Wrong technique in product usage process [Unknown]
